FAERS Safety Report 6466605-1 (Version None)
Quarter: 2009Q4

REPORT INFORMATION
  Report Type: 
  Country: None (occurrence: None)
  Receive Date: 20091127
  Receipt Date: 20091127
  Transmission Date: 20100525
  Serious: No
  Sender: FDA-Public Use
  Company Number: None

PATIENT
  Age: 48 Year
  Sex: Female
  Weight: 71.2147 kg

DRUGS (1)
  1. ZICAM ORAL-MIST MOUTH SPRAY [Suspect]
     Indication: NASOPHARYNGITIS
     Dosage: EVERY 2 HOURS
     Dates: start: 20070201, end: 20080401

REACTIONS (1)
  - ANOSMIA [None]
